FAERS Safety Report 9246045 (Version 2)
Quarter: 2013Q4

REPORT INFORMATION
  Report Type: Spontaneous
  Country: BR (occurrence: BR)
  Receive Date: 20130422
  Receipt Date: 20131008
  Transmission Date: 20140711
  Serious: Yes (Other)
  Sender: FDA-Public Use
  Company Number: PHHY2013BR038620

PATIENT
  Sex: Female

DRUGS (3)
  1. STALEVO [Suspect]
     Indication: PARKINSON^S DISEASE
     Dosage: 4 DF, DAILY
     Route: 048
     Dates: start: 2008
  2. SIFROL [Concomitant]
     Indication: PARKINSON^S DISEASE
     Dosage: 4 DF, DAILY
     Route: 048
  3. FRONTAL [Concomitant]
     Dosage: 1 DF, DAILY
     Route: 048

REACTIONS (3)
  - Parkinson^s disease [Not Recovered/Not Resolved]
  - Musculoskeletal stiffness [Not Recovered/Not Resolved]
  - Tremor [Not Recovered/Not Resolved]
